FAERS Safety Report 16258649 (Version 1)
Quarter: 2019Q2

REPORT INFORMATION
  Report Type: Spontaneous
  Country: DE (occurrence: DE)
  Receive Date: 20190430
  Receipt Date: 20190430
  Transmission Date: 20190711
  Serious: Yes (Other)
  Sender: FDA-Public Use
  Company Number: PHHY2019DE088088

PATIENT
  Age: 60 Year
  Sex: Male

DRUGS (13)
  1. VALPROIC ACID. [Suspect]
     Active Substance: VALPROIC ACID
     Indication: POST-ANOXIC MYOCLONUS
     Dosage: UNK
     Route: 065
  2. PIRACETAM [Concomitant]
     Active Substance: PIRACETAM
     Indication: POST-ANOXIC MYOCLONUS
     Dosage: 2400 MG, QD
     Route: 065
  3. GABAPENTIN. [Suspect]
     Active Substance: GABAPENTIN
     Indication: POST-ANOXIC MYOCLONUS
     Dosage: UNK
     Route: 065
  4. CLONAZEPAM. [Suspect]
     Active Substance: CLONAZEPAM
     Indication: POST-ANOXIC MYOCLONUS
     Dosage: UPTO 1.5 MG PER DAY
     Route: 065
  5. PREGABALIN. [Concomitant]
     Active Substance: PREGABALIN
     Indication: POST-ANOXIC MYOCLONUS
     Dosage: UNK
     Route: 065
  6. BRIVARACETAM [Suspect]
     Active Substance: BRIVARACETAM
     Indication: POST-ANOXIC MYOCLONUS
     Dosage: 150 MG, QD
     Route: 065
  7. TOPIRAMATE. [Suspect]
     Active Substance: TOPIRAMATE
     Indication: POST-ANOXIC MYOCLONUS
  8. ZONISAMIDE. [Suspect]
     Active Substance: ZONISAMIDE
     Indication: POST-ANOXIC MYOCLONUS
     Dosage: UNK
     Route: 065
  9. LAMOTRIGINE. [Suspect]
     Active Substance: LAMOTRIGINE
     Indication: POST-ANOXIC MYOCLONUS
     Dosage: UNK
     Route: 065
  10. PERAMPANEL [Suspect]
     Active Substance: PERAMPANEL
     Indication: POST-ANOXIC MYOCLONUS
     Dosage: 8 MG, QD
     Route: 065
  11. LEVETIRACETAM. [Concomitant]
     Active Substance: LEVETIRACETAM
     Indication: POST-ANOXIC MYOCLONUS
     Dosage: 1500 MG, QD
     Route: 065
  12. TOPIRAMATE. [Suspect]
     Active Substance: TOPIRAMATE
     Indication: SEIZURE
     Dosage: UNK
     Route: 048
  13. ESLICARBAZEPINE [Concomitant]
     Active Substance: ESLICARBAZEPINE
     Indication: POST-ANOXIC MYOCLONUS
     Dosage: UNK
     Route: 065

REACTIONS (11)
  - Vomiting [Unknown]
  - Nausea [Unknown]
  - Rash [Unknown]
  - Dystonia [Unknown]
  - Product use in unapproved indication [Unknown]
  - Parkinsonism [Unknown]
  - Fatigue [Unknown]
  - Aggression [Unknown]
  - Salivary hypersecretion [Unknown]
  - Speech disorder [Unknown]
  - Myoclonus [Unknown]
